FAERS Safety Report 20946895 (Version 1)
Quarter: 2022Q2

REPORT INFORMATION
  Report Type: Other
  Country: DE (occurrence: None)
  Receive Date: 20220610
  Receipt Date: 20220610
  Transmission Date: 20220721
  Serious: Yes (Other)
  Sender: FDA-Public Use
  Company Number: DE-ROCHE-3111271

PATIENT
  Sex: Female

DRUGS (1)
  1. OCREVUS [Suspect]
     Active Substance: OCRELIZUMAB
     Indication: Multiple sclerosis
     Dosage: ON 25/OCT/2021, MOST RECENT DOSE (PRIOR TO EVENT) 600 MG
     Route: 042
     Dates: start: 20200414

REACTIONS (1)
  - Infection [Unknown]
